FAERS Safety Report 7411771-4 (Version None)
Quarter: 2011Q2

REPORT INFORMATION
  Report Type: 
  Country: None (occurrence: None)
  Receive Date: 20110413
  Receipt Date: 20110107
  Transmission Date: 20111010
  Serious: Yes (Other)
  Sender: FDA-Public Use
  Company Number: US-BRISTOL-MYERS SQUIBB COMPANY-15477102

PATIENT
  Sex: Female

DRUGS (19)
  1. BENADRYL [Concomitant]
     Dosage: 1DF:50 UNIT NOT SPECIFIED
     Route: 042
     Dates: start: 20110105
  2. PROVENTIL [Concomitant]
     Dosage: 1DF:2 PUFFS ALSO ON 8DEC10,5JAN11
     Dates: start: 20101119
  3. VICODIN [Concomitant]
     Dosage: TABLET 1DF:5/500 UNIT NOT SPECIFIED. ALSO ON 8DEC10,5JAN11 PRN
     Dates: start: 20101119
  4. MIRALAX [Concomitant]
     Dosage: AT BED TIME. ALSO ON 8DEC10,5JAN11
     Dates: start: 20101119
  5. ERBITUX [Suspect]
     Route: 042
     Dates: start: 20110105, end: 20110105
  6. ACETAMINOPHEN [Concomitant]
     Dosage: 1DF:650 UNIT NOT SPECIFIED DOSAGE FORM:PILLS
     Dates: start: 20110105
  7. MULTI-VITAMIN [Concomitant]
     Dosage: 1DF:1 TABLET ALSO ON 8DEC10,5JAN11
     Dates: start: 20101119
  8. METFORMIN HCL [Concomitant]
     Dosage: ALSO ON 8DEC10,5JAN11
     Dates: start: 20101119
  9. CHANTIX [Concomitant]
     Dosage: ALSO ON 8DEC10,5JAN11
     Dates: start: 20101119
  10. ZOPINOX [Concomitant]
     Dosage: ALSO ON 5JAN11; NEBULIZER
     Dates: start: 20101208
  11. DEXLANSOPRAZOLE [Concomitant]
     Dates: start: 20101119
  12. LEVALBUTEROL HCL [Concomitant]
  13. ADVAIR DISKUS 100/50 [Concomitant]
     Dosage: ALSO ON 8DEC10,5JAN11 1DF:1 PUFF
     Dates: start: 20101119
  14. LASIX [Concomitant]
     Dosage: ALSO ON 8DEC10,5JAN11
     Dates: start: 20101119
  15. ALBUTEROL [Concomitant]
     Dosage: AS NECESSARY ALSO ON 8DEC10,5JAN11
     Route: 055
     Dates: start: 20101119
  16. FISH OIL [Concomitant]
     Dosage: 1TAB ALSO ON 8DEC10,5JAN11
     Dates: start: 20101119
  17. CRESTOR [Concomitant]
     Dosage: AT BED TIME ALSO ON 8DEC10,5JAN11
     Dates: start: 20101119
  18. PREDNISONE [Concomitant]
  19. LEVAQUIN [Concomitant]
     Dates: start: 20101119

REACTIONS (8)
  - NAUSEA [None]
  - FLUSHING [None]
  - BLOOD PRESSURE INCREASED [None]
  - FEELING HOT [None]
  - CHEST DISCOMFORT [None]
  - DYSPNOEA [None]
  - CHILLS [None]
  - APHASIA [None]
